FAERS Safety Report 6540201-X (Version None)
Quarter: 2010Q1

REPORT INFORMATION
  Report Type: 
  Country: None (occurrence: None)
  Receive Date: 20100112
  Receipt Date: 20100106
  Transmission Date: 20100710
  Serious: Yes (Death)
  Sender: FDA-Public Use
  Company Number: 2009JP006535

PATIENT
  Age: 46 Year
  Sex: Male
  Weight: 44 kg

DRUGS (7)
  1. PROGRAF [Suspect]
     Indication: LUNG TRANSPLANT
     Dosage: 6 MG, BID, ORAL
     Route: 048
     Dates: start: 20010319
  2. CELLCEPT [Suspect]
     Indication: LUNG TRANSPLANT
     Dosage: 750 MG, BID, ORAL
     Route: 048
     Dates: start: 20010113
  3. PREDNISOLONE [Suspect]
     Indication: LUNG TRANSPLANT
     Dosage: 25 MG, UID/QD, ORAL
     Route: 048
     Dates: start: 20010113
  4. SULFAMETHOXAZOLE AND TRIMETHOPRIM [Concomitant]
  5. FAMOTIDINE [Concomitant]
  6. SELBEX (TEPRENONE) [Concomitant]
  7. LASIX [Concomitant]

REACTIONS (5)
  - CARDIAC FAILURE [None]
  - HAEMOPTYSIS [None]
  - MYOCARDITIS MYCOTIC [None]
  - PERICARDITIS FUNGAL [None]
  - PULMONARY MYCOSIS [None]
